FAERS Safety Report 8817443 (Version 1)
Quarter: 2012Q4

REPORT INFORMATION
  Report Type: 
  Country: US (occurrence: US)
  Receive Date: 20121001
  Receipt Date: 20121001
  Transmission Date: 20130627
  Serious: Yes (Other)
  Sender: FDA-Public Use
  Company Number: US-ASTELLAS-2011US008636

PATIENT

DRUGS (2)
  1. VESICARE [Suspect]
     Indication: PRODUCT USED FOR UNKNOWN INDICATION
     Dosage: UNK
     Route: 065
  2. AMPYRA [Interacting]
     Indication: GAIT DISTURBANCE
     Dosage: 10 mg, Unknown/D
     Route: 065
     Dates: start: 201108, end: 201108

REACTIONS (6)
  - Multiple sclerosis relapse [Recovering/Resolving]
  - Drug interaction [Unknown]
  - Urinary retention [Recovering/Resolving]
  - Tremor [Recovering/Resolving]
  - Hyperhidrosis [Recovering/Resolving]
  - Nausea [Recovering/Resolving]
